FAERS Safety Report 5379441-4 (Version None)
Quarter: 2007Q3

REPORT INFORMATION
  Report Type: 
  Country: None (occurrence: None)
  Receive Date: 20070703
  Receipt Date: 20070618
  Transmission Date: 20080115
  Serious: No
  Sender: FDA-Public Use
  Company Number: TPA2007A01327

PATIENT
  Age: 76 Year
  Sex: Male
  Weight: 97.977 kg

DRUGS (7)
  1. ACTOS [Suspect]
     Indication: TYPE 2 DIABETES MELLITUS
     Dosage: SEE IMAGE
     Route: 048
     Dates: start: 20070606
  2. AMARYL [Concomitant]
  3. METFORMIN (METFORMIN) [Concomitant]
  4. ATACAND [Concomitant]
  5. ASPIRIN [Concomitant]
  6. FISH OIL (FISH OIL) [Concomitant]
  7. MULTIVITAMIN [Concomitant]

REACTIONS (3)
  - CHEST DISCOMFORT [None]
  - HYPERHIDROSIS [None]
  - RESPIRATORY ARREST [None]
